FAERS Safety Report 24940880 (Version 1)
Quarter: 2025Q1

REPORT INFORMATION
  Report Type: Spontaneous
  Country: EU (occurrence: EU)
  Receive Date: 20250207
  Receipt Date: 20250207
  Transmission Date: 20250408
  Serious: Yes (Other)
  Sender: Harrow Health
  Company Number: EU-IMP-2025000097

PATIENT

DRUGS (1)
  1. NEPAFENAC [Suspect]
     Active Substance: NEPAFENAC
     Indication: Cataract
     Route: 065
     Dates: end: 20240304

REACTIONS (1)
  - Retinal detachment [Unknown]

NARRATIVE: CASE EVENT DATE: 20240305
